FAERS Safety Report 10794795 (Version 1)
Quarter: 2015Q1

REPORT INFORMATION
  Report Type: Spontaneous
  Country: US (occurrence: US)
  Receive Date: 20150213
  Receipt Date: 20150213
  Transmission Date: 20150721
  Serious: No
  Sender: FDA-Public Use
  Company Number: US-GLAXOSMITHKLINE-US2015003682

PATIENT
  Age: 68 Year
  Sex: Female

DRUGS (12)
  1. CINNAMON. [Concomitant]
     Active Substance: CINNAMON
  2. FLUOXETINE [Concomitant]
     Active Substance: FLUOXETINE\FLUOXETINE HYDROCHLORIDE
  3. ADVAIR DISKUS [Suspect]
     Active Substance: FLUTICASONE PROPIONATE\SALMETEROL XINAFOATE
     Indication: CHRONIC OBSTRUCTIVE PULMONARY DISEASE
     Dosage: 1 PUFF(S), BID
     Route: 055
     Dates: start: 200501
  4. LOSARTAN [Concomitant]
     Active Substance: LOSARTAN
  5. LEVEMIR [Concomitant]
     Active Substance: INSULIN DETEMIR
  6. POTASSIUM [Concomitant]
     Active Substance: POTASSIUM
  7. XANAX [Concomitant]
     Active Substance: ALPRAZOLAM
  8. METFORMIN [Concomitant]
     Active Substance: METFORMIN HYDROCHLORIDE
  9. SIMVASTATIN. [Concomitant]
     Active Substance: SIMVASTATIN
  10. SPIRIVA [Concomitant]
     Active Substance: TIOTROPIUM BROMIDE MONOHYDRATE
  11. HUMALOG [Concomitant]
     Active Substance: INSULIN LISPRO
  12. VITAMIN D [Concomitant]
     Active Substance: CHOLECALCIFEROL

REACTIONS (3)
  - Laryngitis [Not Recovered/Not Resolved]
  - Dental care [Recovering/Resolving]
  - Dry mouth [Not Recovered/Not Resolved]

NARRATIVE: CASE EVENT DATE: 201402
